FAERS Safety Report 13035513 (Version 1)
Quarter: 2016Q4

REPORT INFORMATION
  Report Type: Spontaneous
  Country: US (occurrence: US)
  Receive Date: 20161216
  Receipt Date: 20161216
  Transmission Date: 20170207
  Serious: Yes (Death)
  Sender: FDA-Public Use
  Company Number: None

PATIENT
  Age: 71 Year
  Sex: Male

DRUGS (18)
  1. FEXOFENADINE [Concomitant]
     Active Substance: FEXOFENADINE\FEXOFENADINE HYDROCHLORIDE
  2. ROSUVASTATIN. [Concomitant]
     Active Substance: ROSUVASTATIN
  3. ADVAIR HFA [Concomitant]
     Active Substance: FLUTICASONE PROPIONATE\SALMETEROL XINAFOATE
  4. ALPRAZOLAM. [Concomitant]
     Active Substance: ALPRAZOLAM
  5. LEVOFLOXACIN. [Concomitant]
     Active Substance: LEVOFLOXACIN
  6. CARVEDILOL. [Concomitant]
     Active Substance: CARVEDILOL
  7. HYDROCODONE\APAP [Concomitant]
     Active Substance: ACETAMINOPHEN\HYDROCODONE
  8. TRAMADOL. [Concomitant]
     Active Substance: TRAMADOL
  9. FUROSEMIDE. [Concomitant]
     Active Substance: FUROSEMIDE
  10. TOBRAMYCIN 300MG/5ML [Suspect]
     Active Substance: TOBRAMYCIN
  11. SPIRIVA [Concomitant]
     Active Substance: TIOTROPIUM BROMIDE MONOHYDRATE
  12. AMOXICILLIN. [Concomitant]
     Active Substance: AMOXICILLIN
  13. PREDNISONE. [Concomitant]
     Active Substance: PREDNISONE
  14. CIALIS [Concomitant]
     Active Substance: TADALAFIL
  15. POVIDONE [Concomitant]
     Active Substance: POVIDONE
  16. TOVIAZ [Concomitant]
     Active Substance: FESOTERODINE FUMARATE
  17. INVOKANA [Concomitant]
     Active Substance: CANAGLIFLOZIN
  18. FLUCONAZOLE. [Concomitant]
     Active Substance: FLUCONAZOLE

REACTIONS (1)
  - Death [None]

NARRATIVE: CASE EVENT DATE: 20161212
